FAERS Safety Report 11704467 (Version 2)
Quarter: 2016Q1

REPORT INFORMATION
  Report Type: Spontaneous
  Country: US (occurrence: US)
  Receive Date: 20151106
  Receipt Date: 20160104
  Transmission Date: 20160525
  Serious: No
  Sender: FDA-Public Use
  Company Number: US-PFIZER INC-2015364705

PATIENT
  Sex: Male

DRUGS (1)
  1. RELPAX [Suspect]
     Active Substance: ELETRIPTAN HYDROBROMIDE
     Indication: MIGRAINE
     Dosage: 10 MG, 2X/DAY
     Dates: start: 2012, end: 201510

REACTIONS (5)
  - Drug ineffective [Not Recovered/Not Resolved]
  - Insomnia [Recovered/Resolved]
  - Nausea [Not Recovered/Not Resolved]
  - Eye pain [Not Recovered/Not Resolved]
  - Headache [Not Recovered/Not Resolved]
